FAERS Safety Report 9620266 (Version 1)
Quarter: 2013Q4

REPORT INFORMATION
  Report Type: Spontaneous
  Country: US (occurrence: US)
  Receive Date: 20131014
  Receipt Date: 20131014
  Transmission Date: 20140711
  Serious: No
  Sender: FDA-Public Use
  Company Number: US-ALLERGAN-1306004US

PATIENT
  Age: 60 Year
  Sex: Female

DRUGS (11)
  1. ALPHAGAN P [Suspect]
     Indication: GLAUCOMA
     Dosage: 2 GTT, UNK
     Route: 047
     Dates: start: 20130418
  2. DORZOLAMIDE/ TIMOLOL [Concomitant]
     Indication: GLAUCOMA
  3. LATANOPROST [Concomitant]
     Indication: GLAUCOMA
     Dosage: UNK UNK, QHS
  4. PEPCID                             /00706001/ [Concomitant]
     Indication: GASTROOESOPHAGEAL REFLUX DISEASE
  5. CARAFATE [Concomitant]
     Indication: GASTROOESOPHAGEAL REFLUX DISEASE
  6. PAXIL [Concomitant]
     Indication: PRODUCT USED FOR UNKNOWN INDICATION
     Dosage: 30 MG, UNK
  7. LOVASTATIN [Concomitant]
     Indication: PRODUCT USED FOR UNKNOWN INDICATION
  8. FOSAMAX [Concomitant]
     Indication: PRODUCT USED FOR UNKNOWN INDICATION
     Dosage: UNK UNK, Q WEEK
  9. ASA [Concomitant]
     Indication: PRODUCT USED FOR UNKNOWN INDICATION
     Dosage: 81 MG, UNK
  10. MTV [Concomitant]
     Indication: PRODUCT USED FOR UNKNOWN INDICATION
  11. STOOL SOFTENER NOS [Concomitant]
     Indication: PRODUCT USED FOR UNKNOWN INDICATION

REACTIONS (1)
  - Chest pain [Not Recovered/Not Resolved]
